FAERS Safety Report 19752184 (Version 6)
Quarter: 2022Q4

REPORT INFORMATION
  Report Type: Spontaneous
  Country: DE (occurrence: DE)
  Receive Date: 20210827
  Receipt Date: 20221207
  Transmission Date: 20230112
  Serious: Yes (Other)
  Sender: FDA-Public Use
  Company Number: DE-TAKEDA-2021TUS042126

PATIENT
  Age: 36 Year
  Sex: Female

DRUGS (44)
  1. CANDESARTAN [Suspect]
     Active Substance: CANDESARTAN
     Indication: Hypertension
     Dosage: 16 MILLIGRAM, QD
     Route: 048
  2. PANTOPRAZOLE [Suspect]
     Active Substance: PANTOPRAZOLE
     Indication: Gastric disorder
     Dosage: 20 MILLIGRAM, QD
     Route: 048
  3. PANTOPRAZOLE [Suspect]
     Active Substance: PANTOPRAZOLE
     Dosage: 20 MILLIGRAM, QD
     Route: 048
  4. PARATHYROID HORMONE [Suspect]
     Active Substance: PARATHYROID HORMONE
     Indication: Hypoparathyroidism
     Dosage: 25 MICROGRAM, QD
     Route: 058
     Dates: start: 20170928
  5. CORTISONE [Suspect]
     Active Substance: CORTISONE
     Indication: Product used for unknown indication
     Dosage: 5 MILLIGRAM, QD
     Route: 048
     Dates: start: 20210726
  6. CORTISONE [Suspect]
     Active Substance: CORTISONE
     Dosage: 5 MILLIGRAM, QD
     Route: 048
     Dates: start: 20210726
  7. CORTISONE [Suspect]
     Active Substance: CORTISONE
     Dosage: 5 MILLIGRAM, QD
     Route: 048
     Dates: start: 20210726
  8. CORTISONE [Suspect]
     Active Substance: CORTISONE
     Dosage: UNK
     Route: 065
  9. NATPARA (PARATHYROID HORMONE) [Suspect]
     Active Substance: PARATHYROID HORMONE
     Indication: Hypoparathyroidism
     Dosage: 25 MICROGRAM, DAILY
     Route: 058
     Dates: start: 20170928
  10. NATPARA (PARATHYROID HORMONE) [Suspect]
     Active Substance: PARATHYROID HORMONE
     Dosage: 25 MICROGRAM, QD
     Route: 058
     Dates: start: 20170928
  11. CALCITRAT [Concomitant]
     Indication: Hypoparathyroidism
     Dosage: UNK UNK, QD ()
     Route: 048
  12. CALCITRAT [Concomitant]
     Dosage: UNK UNK, QD ()
     Route: 048
  13. CALCITRAT [Concomitant]
     Dosage: UNK UNK, QD ()
     Route: 048
  14. SPIRONOLACTONE [Concomitant]
     Active Substance: SPIRONOLACTONE
     Indication: Oedema
     Dosage: 25 MILLIGRAM, QD
     Route: 048
  15. SPIRONOLACTONE [Concomitant]
     Active Substance: SPIRONOLACTONE
     Dosage: 25 MILLIGRAM, QD
     Route: 048
  16. SPIRONOLACTONE [Concomitant]
     Active Substance: SPIRONOLACTONE
     Dosage: 25 MILLIGRAM, QD
     Route: 048
  17. SPIRONOLACTONE [Concomitant]
     Active Substance: SPIRONOLACTONE
     Dosage: UNK
     Route: 065
  18. MAGNESIUM [Concomitant]
     Active Substance: MAGNESIUM
     Indication: Hypoparathyroidism
     Dosage: 4-5 SACHETS, QD, DAILY
     Route: 048
  19. MAGNESIUM [Concomitant]
     Active Substance: MAGNESIUM
     Dosage: 4-5 SACHETS, QD, DAILY
     Route: 048
  20. MAGNESIUM [Concomitant]
     Active Substance: MAGNESIUM
     Dosage: 4-5 SACHETS, QD, DAILY
     Route: 048
  21. CALCIUM CARBONATE\CHOLECALCIFEROL [Concomitant]
     Active Substance: CALCIUM CARBONATE\CHOLECALCIFEROL
     Indication: Hypoparathyroidism
     Dosage: UNK UNK, QD ()
     Route: 048
  22. CALCIUM CARBONATE\CHOLECALCIFEROL [Concomitant]
     Active Substance: CALCIUM CARBONATE\CHOLECALCIFEROL
     Dosage: UNK UNK, QD ()
     Route: 048
  23. CALCIUM CARBONATE\CHOLECALCIFEROL [Concomitant]
     Active Substance: CALCIUM CARBONATE\CHOLECALCIFEROL
     Dosage: UNK UNK, QD ()
     Route: 048
  24. ADALIMUMAB [Concomitant]
     Active Substance: ADALIMUMAB
     Indication: Crohn^s disease
     Dosage: 40 MILLIGRAM, Q2WEEKS
     Route: 058
  25. ADALIMUMAB [Concomitant]
     Active Substance: ADALIMUMAB
     Dosage: 40 MILLIGRAM, Q2WEEKS
     Route: 058
  26. ADALIMUMAB [Concomitant]
     Active Substance: ADALIMUMAB
     Dosage: 40 MILLIGRAM, Q2WEEKS
     Route: 058
  27. ADALIMUMAB [Concomitant]
     Active Substance: ADALIMUMAB
     Dosage: 40 MILLIGRAM, Q2WEEKS
     Route: 065
  28. CALCITRIOL [Concomitant]
     Active Substance: CALCITRIOL
     Indication: Hypoparathyroidism
     Dosage: UNK ()
     Route: 048
  29. CALCITRIOL [Concomitant]
     Active Substance: CALCITRIOL
     Dosage: UNK ()
     Route: 048
  30. CALCITRIOL [Concomitant]
     Active Substance: CALCITRIOL
     Dosage: UNK ()
     Route: 048
  31. XIPAMIDE [Concomitant]
     Active Substance: XIPAMIDE
     Indication: Hypertension
     Dosage: 20 MILLIGRAM, QD
     Route: 048
  32. XIPAMIDE [Concomitant]
     Active Substance: XIPAMIDE
     Indication: Oedema
  33. KALIUM-R [Concomitant]
     Indication: Hypokalaemia
     Dosage: 9 DOSAGE FORM, QD
     Route: 048
  34. KALIUM-R [Concomitant]
     Dosage: 9 DOSAGE FORM, QD
     Route: 048
  35. CALCIUM [Concomitant]
     Active Substance: CALCIUM
     Indication: Hypoparathyroidism
     Dosage: UNK ()
     Route: 048
  36. CALCIUM [Concomitant]
     Active Substance: CALCIUM
     Dosage: UNK ()
     Route: 048
  37. LEVOTHYROXINE SODIUM [Concomitant]
     Active Substance: LEVOTHYROXINE SODIUM
     Indication: Thyroidectomy
     Dosage: 150 MICROGRAM, QD
     Route: 048
  38. LEVOTHYROXINE SODIUM [Concomitant]
     Active Substance: LEVOTHYROXINE SODIUM
     Dosage: 150 MICROGRAM, QD
     Route: 048
  39. LEVOTHYROXINE SODIUM [Concomitant]
     Active Substance: LEVOTHYROXINE SODIUM
     Indication: Thyroidectomy
     Dosage: 150 MICROGRAM, QD
     Route: 048
  40. ADALIMUMAB [Concomitant]
     Active Substance: ADALIMUMAB
     Indication: Hypokalaemia
     Dosage: 40 MILLIGRAM, Q2WEEKS
     Route: 065
  41. ADALIMUMAB [Concomitant]
     Active Substance: ADALIMUMAB
     Indication: Crohn^s disease
     Dosage: UNK, UNK, QD
     Route: 048
  42. POTASSIUM CHLORIDE [Concomitant]
     Active Substance: POTASSIUM CHLORIDE
     Indication: Product used for unknown indication
     Dosage: UNK
     Route: 048
  43. CALCIUM CARBONATE [Concomitant]
     Active Substance: CALCIUM CARBONATE
     Indication: Hypoparathyroidism
     Dosage: UNK
     Route: 048
  44. CHOLECALCIFEROL [Concomitant]
     Active Substance: CHOLECALCIFEROL
     Indication: Hypoparathyroidism
     Dosage: UNK UNK, QD
     Route: 065

REACTIONS (11)
  - Therapy interrupted [Recovered/Resolved]
  - Abortion spontaneous [Recovered/Resolved]
  - Device issue [Recovered/Resolved]
  - Diarrhoea [Recovered/Resolved]
  - Exposure during pregnancy [Recovered/Resolved]
  - Pregnancy [Unknown]
  - Paraesthesia [Recovering/Resolving]
  - Hypocalcaemia [Recovered/Resolved]
  - Off label use [Not Recovered/Not Resolved]
  - Weight increased [Recovered/Resolved]
  - Weight decreased [Recovered/Resolved]

NARRATIVE: CASE EVENT DATE: 20170928
